FAERS Safety Report 16165567 (Version 1)
Quarter: 2019Q2

REPORT INFORMATION
  Report Type: Spontaneous
  Country: FR (occurrence: FR)
  Receive Date: 20190405
  Receipt Date: 20190405
  Transmission Date: 20190711
  Serious: Yes (Other)
  Sender: FDA-Public Use
  Company Number: FR-WHANIN PHARM. CO., LTD.-2019M1032202

PATIENT
  Age: 38 Year
  Sex: Male

DRUGS (6)
  1. CLOZAPINE. [Suspect]
     Active Substance: CLOZAPINE
     Indication: SCHIZOPHRENIA
     Dosage: UNK
     Dates: start: 2016
  2. CLOZAPINE. [Interacting]
     Active Substance: CLOZAPINE
     Dosage: UNK
     Dates: start: 2018
  3. CLOZAPINE. [Interacting]
     Active Substance: CLOZAPINE
     Dosage: UNK
     Dates: start: 2018
  4. VALPRO [Interacting]
     Active Substance: VALPROATE SODIUM
     Indication: SCHIZOPHRENIA
     Dosage: UNK
     Dates: start: 2016
  5. VALPRO [Interacting]
     Active Substance: VALPROATE SODIUM
     Dosage: UNK
     Dates: start: 2018
  6. CLOZAPINE. [Interacting]
     Active Substance: CLOZAPINE
     Dosage: UNK
     Dates: start: 2018

REACTIONS (3)
  - Drug interaction [Recovered/Resolved]
  - Agranulocytosis [Recovered/Resolved]
  - Product use in unapproved indication [Unknown]

NARRATIVE: CASE EVENT DATE: 2018
